FAERS Safety Report 6870591 (Version 7)
Quarter: 2024Q4

REPORT INFORMATION
  Report Type: Spontaneous
  Country: CA (occurrence: CA)
  Receive Date: 20081231
  Receipt Date: 20241010
  Transmission Date: 20250114
  Serious: Yes (Death, Hospitalization, Other)
  Sender: BRISTOL MYERS SQUIBB
  Company Number: CA-BRISTOL-MYERS SQUIBB COMPANY-14455729

PATIENT
  Age: 54 Year
  Sex: Male

DRUGS (103)
  1. ATAZANAVIR SULFATE [Suspect]
     Active Substance: ATAZANAVIR SULFATE
     Indication: Bipolar disorder
     Dosage: UNK
  2. ATAZANAVIR SULFATE [Suspect]
     Active Substance: ATAZANAVIR SULFATE
     Indication: HIV infection
     Dosage: UNK
     Route: 048
  3. ATAZANAVIR SULFATE [Suspect]
     Active Substance: ATAZANAVIR SULFATE
     Dosage: UNK
     Route: 005
  4. ATAZANAVIR SULFATE [Suspect]
     Active Substance: ATAZANAVIR SULFATE
     Dosage: UNK
     Route: 048
  5. ATAZANAVIR SULFATE [Suspect]
     Active Substance: ATAZANAVIR SULFATE
     Dosage: UNK
  6. ATAZANAVIR SULFATE [Suspect]
     Active Substance: ATAZANAVIR SULFATE
     Dosage: UNK
     Route: 048
  7. ATAZANAVIR SULFATE [Suspect]
     Active Substance: ATAZANAVIR SULFATE
     Dosage: UNK
     Route: 048
  8. ATAZANAVIR SULFATE [Suspect]
     Active Substance: ATAZANAVIR SULFATE
     Dosage: UNK
  9. SUSTIVA [Suspect]
     Active Substance: EFAVIRENZ
     Indication: HIV infection
     Dosage: 400 MILLIGRAM, BID
     Route: 048
     Dates: start: 2004
  10. SUSTIVA [Suspect]
     Active Substance: EFAVIRENZ
     Dosage: UNK
  11. SUSTIVA [Suspect]
     Active Substance: EFAVIRENZ
     Dosage: UNK
     Route: 048
  12. SUSTIVA [Suspect]
     Active Substance: EFAVIRENZ
     Dosage: 400 MILLIGRAM, BID
     Dates: start: 2004
  13. SUSTIVA [Suspect]
     Active Substance: EFAVIRENZ
     Dosage: 400 MILLIGRAM
     Route: 048
     Dates: start: 2004
  14. SUSTIVA [Suspect]
     Active Substance: EFAVIRENZ
     Dosage: 400 MILLIGRAM
     Route: 048
  15. SUSTIVA [Suspect]
     Active Substance: EFAVIRENZ
     Dosage: 400 MILLIGRAM
     Route: 048
  16. EFAVIRENZ [Interacting]
     Active Substance: EFAVIRENZ
     Indication: HIV infection
     Dosage: UNK
     Route: 048
  17. EFAVIRENZ [Interacting]
     Active Substance: EFAVIRENZ
     Dosage: UNK
     Route: 048
  18. EFAVIRENZ [Interacting]
     Active Substance: EFAVIRENZ
     Dosage: UNK
  19. EFAVIRENZ [Interacting]
     Active Substance: EFAVIRENZ
     Dosage: UNK
     Route: 048
  20. EFAVIRENZ [Interacting]
     Active Substance: EFAVIRENZ
     Dosage: UNK
     Route: 048
  21. EFAVIRENZ [Interacting]
     Active Substance: EFAVIRENZ
  22. SERTRALINE HYDROCHLORIDE [Concomitant]
     Active Substance: SERTRALINE HYDROCHLORIDE
     Indication: HIV infection
     Dosage: 400 MILLIGRAM, BID
  23. SERTRALINE HYDROCHLORIDE [Concomitant]
     Active Substance: SERTRALINE HYDROCHLORIDE
     Indication: Bipolar disorder
     Dosage: UNK
     Route: 048
  24. SERTRALINE HYDROCHLORIDE [Concomitant]
     Active Substance: SERTRALINE HYDROCHLORIDE
     Dosage: UNK
     Route: 048
  25. RITONAVIR [Concomitant]
     Active Substance: RITONAVIR
     Indication: HIV infection
  26. RITONAVIR [Concomitant]
     Active Substance: RITONAVIR
     Indication: Depression
  27. RISPERIDONE [Concomitant]
     Active Substance: RISPERIDONE
     Indication: Depression
  28. RALTEGRAVIR POTASSIUM [Concomitant]
     Active Substance: RALTEGRAVIR POTASSIUM
     Indication: HIV infection
     Dosage: UNK
  29. RALTEGRAVIR POTASSIUM [Concomitant]
     Active Substance: RALTEGRAVIR POTASSIUM
     Dosage: 400 MILLIGRAM, BID
     Route: 048
  30. RALTEGRAVIR POTASSIUM [Concomitant]
     Active Substance: RALTEGRAVIR POTASSIUM
     Dosage: 400 MILLIGRAM, BID
     Route: 048
  31. RALTEGRAVIR POTASSIUM [Concomitant]
     Active Substance: RALTEGRAVIR POTASSIUM
     Dosage: 400 MILLIGRAM, BID
     Route: 048
  32. RALTEGRAVIR POTASSIUM [Concomitant]
     Active Substance: RALTEGRAVIR POTASSIUM
     Dosage: 400 MILLIGRAM, BID
     Route: 048
  33. RALTEGRAVIR POTASSIUM [Concomitant]
     Active Substance: RALTEGRAVIR POTASSIUM
     Route: 048
  34. CITALOPRAM HYDROBROMIDE [Concomitant]
     Active Substance: CITALOPRAM HYDROBROMIDE
     Indication: Psychotic disorder
  35. CITALOPRAM HYDROBROMIDE [Concomitant]
     Active Substance: CITALOPRAM HYDROBROMIDE
     Indication: Depression
  36. QUETIAPINE [Concomitant]
     Active Substance: QUETIAPINE
     Indication: Bipolar disorder
     Dosage: UNK
  37. QUETIAPINE [Concomitant]
     Active Substance: QUETIAPINE
     Route: 048
  38. KALETRA [Concomitant]
     Active Substance: LOPINAVIR\RITONAVIR
     Indication: HIV infection
     Dosage: UNK
     Route: 048
  39. KALETRA [Concomitant]
     Active Substance: LOPINAVIR\RITONAVIR
     Route: 048
  40. KALETRA [Concomitant]
     Active Substance: LOPINAVIR\RITONAVIR
     Route: 048
  41. KALETRA [Concomitant]
     Active Substance: LOPINAVIR\RITONAVIR
     Route: 048
  42. KALETRA [Concomitant]
     Active Substance: LOPINAVIR\RITONAVIR
     Route: 048
  43. KALETRA [Concomitant]
     Active Substance: LOPINAVIR\RITONAVIR
  44. LAMIVUDINE [Concomitant]
     Active Substance: LAMIVUDINE
     Indication: HIV infection
     Dosage: UNK
     Route: 048
  45. LAMIVUDINE [Concomitant]
     Active Substance: LAMIVUDINE
     Dosage: UNK
     Route: 005
  46. LAMIVUDINE [Concomitant]
     Active Substance: LAMIVUDINE
     Dosage: UNK
     Route: 005
  47. LAMIVUDINE [Concomitant]
     Active Substance: LAMIVUDINE
     Dosage: UNK
     Route: 048
  48. LAMIVUDINE [Concomitant]
     Active Substance: LAMIVUDINE
  49. LAMIVUDINE [Concomitant]
     Active Substance: LAMIVUDINE
  50. BUPROPION HYDROCHLORIDE [Concomitant]
     Active Substance: BUPROPION HYDROCHLORIDE
     Indication: Bipolar disorder
     Dosage: UNK
     Route: 048
  51. BUPROPION HYDROCHLORIDE [Concomitant]
     Active Substance: BUPROPION HYDROCHLORIDE
     Dosage: UNK
  52. ISENTRESS [Concomitant]
     Active Substance: RALTEGRAVIR POTASSIUM
     Indication: HIV infection
     Dosage: 400 MILLIGRAM, BID
     Route: 048
     Dates: start: 20070620
  53. ISENTRESS [Concomitant]
     Active Substance: RALTEGRAVIR POTASSIUM
     Route: 048
  54. ISENTRESS [Concomitant]
     Active Substance: RALTEGRAVIR POTASSIUM
  55. CLONAZEPAM [Concomitant]
     Active Substance: CLONAZEPAM
     Indication: Bipolar disorder
     Dosage: UNK
     Route: 048
  56. CLONAZEPAM [Concomitant]
     Active Substance: CLONAZEPAM
     Indication: Mental disorder
     Dosage: UNK
  57. CLONAZEPAM [Concomitant]
     Active Substance: CLONAZEPAM
     Indication: Depression
  58. BUPROPION [Concomitant]
     Active Substance: BUPROPION
     Indication: Bipolar disorder
     Dosage: UNK
     Route: 048
  59. BUPROPION [Concomitant]
     Active Substance: BUPROPION
     Indication: Depression
  60. BUPROPION [Concomitant]
     Active Substance: BUPROPION
     Dosage: UNK
     Route: 048
  61. BUPROPION [Concomitant]
     Active Substance: BUPROPION
  62. BUPROPION [Concomitant]
     Active Substance: BUPROPION
  63. BUPROPION [Concomitant]
     Active Substance: BUPROPION
     Dosage: UNK
     Route: 048
  64. BUPROPION [Concomitant]
     Active Substance: BUPROPION
     Dosage: UNK
     Route: 048
  65. BUPROPION [Concomitant]
     Active Substance: BUPROPION
  66. RIVOTRIL [Concomitant]
     Active Substance: CLONAZEPAM
     Indication: Bipolar disorder
     Dosage: UNK
     Route: 048
  67. RALTEGRAVIR [Concomitant]
     Active Substance: RALTEGRAVIR
     Indication: HIV infection
     Dosage: 400 MILLIGRAM, BID
     Route: 048
  68. RALTEGRAVIR [Concomitant]
     Active Substance: RALTEGRAVIR
     Dosage: 400 MILLIGRAM, BID
  69. RALTEGRAVIR [Concomitant]
     Active Substance: RALTEGRAVIR
  70. RALTEGRAVIR [Concomitant]
     Active Substance: RALTEGRAVIR
  71. RALTEGRAVIR [Concomitant]
     Active Substance: RALTEGRAVIR
  72. SERTRALINE [Concomitant]
     Active Substance: SERTRALINE HYDROCHLORIDE
     Indication: Bipolar disorder
     Dosage: UNK
  73. SERTRALINE [Concomitant]
     Active Substance: SERTRALINE HYDROCHLORIDE
     Indication: Mental disorder
     Dosage: UNK
  74. SERTRALINE [Concomitant]
     Active Substance: SERTRALINE HYDROCHLORIDE
     Route: 048
  75. SERTRALINE [Concomitant]
     Active Substance: SERTRALINE HYDROCHLORIDE
     Route: 048
  76. VALPROIC ACID [Concomitant]
     Active Substance: VALPROIC ACID
     Indication: Bipolar disorder
     Dosage: UNK
  77. VALPROIC ACID [Concomitant]
     Active Substance: VALPROIC ACID
     Indication: Mental disorder
  78. ZOPICLONE [Concomitant]
     Active Substance: ZOPICLONE
     Indication: Bipolar disorder
     Dosage: UNK
     Route: 048
  79. ZOPICLONE [Concomitant]
     Active Substance: ZOPICLONE
     Dosage: UNK
     Route: 048
  80. ZOPICLONE [Concomitant]
     Active Substance: ZOPICLONE
     Dosage: UNK
  81. ZOPICLONE [Concomitant]
     Active Substance: ZOPICLONE
     Dosage: UNK
  82. ENFUVIRTIDE [Concomitant]
     Active Substance: ENFUVIRTIDE
     Indication: HIV infection
     Route: 058
  83. ENFUVIRTIDE [Concomitant]
     Active Substance: ENFUVIRTIDE
  84. ENFUVIRTIDE [Concomitant]
     Active Substance: ENFUVIRTIDE
  85. ENFUVIRTIDE [Concomitant]
     Active Substance: ENFUVIRTIDE
     Indication: HIV infection
     Dosage: UNK
     Route: 048
  86. ENFUVIRTIDE [Concomitant]
     Active Substance: ENFUVIRTIDE
     Dosage: UNK
     Route: 058
  87. ENFUVIRTIDE [Concomitant]
     Active Substance: ENFUVIRTIDE
  88. TENOFOVIR SANDOZ [TENOFOVIR DISOPROXIL] [Concomitant]
     Indication: Product used for unknown indication
  89. EMTRIVA [Concomitant]
     Active Substance: EMTRICITABINE
     Indication: Product used for unknown indication
  90. LOPINAVIR AND RITONAVIR [Concomitant]
     Active Substance: LOPINAVIR\RITONAVIR
     Indication: HIV infection
     Route: 048
  91. QUETIAPINE FUMARATE [Concomitant]
     Active Substance: QUETIAPINE FUMARATE
     Indication: HIV infection
     Route: 048
  92. QUETIAPINE FUMARATE [Concomitant]
     Active Substance: QUETIAPINE FUMARATE
     Indication: Mental disorder
     Route: 048
  93. QUETIAPINE FUMARATE [Concomitant]
     Active Substance: QUETIAPINE FUMARATE
     Indication: Depression
     Route: 048
  94. QUETIAPINE FUMARATE [Concomitant]
     Active Substance: QUETIAPINE FUMARATE
     Indication: Bipolar disorder
     Route: 048
  95. QUETIAPINE FUMARATE [Concomitant]
     Active Substance: QUETIAPINE FUMARATE
     Route: 048
  96. QUETIAPINE FUMARATE [Concomitant]
     Active Substance: QUETIAPINE FUMARATE
  97. QUETIAPINE FUMARATE [Concomitant]
     Active Substance: QUETIAPINE FUMARATE
     Route: 048
  98. VALPROATE SODIUM [Concomitant]
     Active Substance: VALPROATE SODIUM
     Indication: Bipolar disorder
  99. CELECOXIB [Concomitant]
     Active Substance: CELECOXIB
     Indication: Psychotic disorder
  100. CITALOPRAM [Concomitant]
     Active Substance: CITALOPRAM
     Indication: Psychotic disorder
  101. CITALOPRAM [Concomitant]
     Active Substance: CITALOPRAM
     Indication: Mental disorder
  102. TENOFOVIR DISOPROXIL FUMARATE [Concomitant]
     Active Substance: TENOFOVIR DISOPROXIL FUMARATE
     Indication: Product used for unknown indication
  103. VIREAD [Concomitant]
     Active Substance: TENOFOVIR DISOPROXIL FUMARATE
     Indication: Product used for unknown indication

REACTIONS (15)
  - Depression [Fatal]
  - Drug interaction [Fatal]
  - Loss of personal independence in daily activities [Fatal]
  - Prescribed overdose [Unknown]
  - Off label use [Unknown]
  - Anxiety [Recovered/Resolved]
  - Depression suicidal [Recovered/Resolved]
  - Paranoia [Unknown]
  - Psychomotor retardation [Unknown]
  - Psychomotor skills impaired [Recovered/Resolved]
  - Psychotic disorder [Recovered/Resolved]
  - Suicidal ideation [Recovered/Resolved]
  - Intentional product use issue [Unknown]
  - Psychiatric decompensation [Unknown]
  - Tearfulness [Unknown]
